FAERS Safety Report 23166736 (Version 1)
Quarter: 2023Q4

REPORT INFORMATION
  Report Type: Spontaneous
  Country: US (occurrence: US)
  Receive Date: 20231109
  Receipt Date: 20231109
  Transmission Date: 20240110
  Serious: Yes (Other)
  Sender: FDA-Public Use
  Company Number: US-PFIZER INC-PV202300181731

PATIENT
  Age: 76 Year
  Sex: Female
  Weight: 79.728 kg

DRUGS (4)
  1. IBRANCE [Suspect]
     Active Substance: PALBOCICLIB
     Indication: Breast cancer
     Dosage: 125 MG, CYCLIC (21 DAYS ON, 7 DAYS OFF)
     Route: 048
     Dates: start: 20170106
  2. IBRANCE [Suspect]
     Active Substance: PALBOCICLIB
     Indication: Bone cancer metastatic
     Dosage: 125 MG, CYCLIC (16 DAYS)
     Route: 048
     Dates: start: 20170106
  3. IBRANCE [Suspect]
     Active Substance: PALBOCICLIB
     Indication: Leukopenia
     Dosage: 125 MG, CYCLIC (DAILY FOR 21 DAYS, THEN OFF FOR 7 DAYS)
     Route: 048
     Dates: start: 20230816
  4. FASLODEX [Suspect]
     Active Substance: FULVESTRANT
     Dosage: UNK (EVERY 4 WEEKS)

REACTIONS (7)
  - Neutropenia [Unknown]
  - Cytopenia [Recovering/Resolving]
  - Blood glucose increased [Unknown]
  - Carbohydrate antigen 15-3 increased [Unknown]
  - Glomerular filtration rate decreased [Unknown]
  - Off label use [Unknown]
  - Product use issue [Unknown]
